FAERS Safety Report 10044517 (Version 1)
Quarter: 2014Q1

REPORT INFORMATION
  Report Type: Spontaneous
  Country: US (occurrence: US)
  Receive Date: 20140328
  Receipt Date: 20140328
  Transmission Date: 20141002
  Serious: No
  Sender: FDA-Public Use
  Company Number: US-B.I. PHARMACEUTICALS,INC./RIDGEFIELD-2014-BI-12735BP

PATIENT
  Sex: Female
  Weight: 98 kg

DRUGS (7)
  1. COMBIVENT [Suspect]
     Indication: ASTHMA
     Dosage: STRENGTH: 20 MCG / 100 MCG; DAILY DOSE: 160 MCG/800 MCG
     Route: 055
     Dates: start: 2013, end: 20140308
  2. LINSINOPRIL [Concomitant]
     Indication: HYPERTENSION
     Dosage: 20 MG
     Route: 048
  3. CLONIDINE [Concomitant]
     Indication: HYPERTENSION
     Dosage: 0.4 MG
     Route: 048
  4. LORATADINE [Concomitant]
     Indication: SINUS DISORDER
     Dosage: 10 MG
     Route: 048
  5. LORATADINE [Concomitant]
     Indication: HYPERSENSITIVITY
  6. ADVAIR [Concomitant]
     Indication: ASTHMA
     Dosage: STRENGTH: 250/50; DAILY DOSE: 500/100
     Route: 055
  7. ASPIRIN [Concomitant]
     Dosage: 81 MG
     Route: 048

REACTIONS (4)
  - Wheezing [Not Recovered/Not Resolved]
  - Cough [Not Recovered/Not Resolved]
  - Intentional overdose [Recovered/Resolved]
  - Off label use [Unknown]
